FAERS Safety Report 5388519-0 (Version None)
Quarter: 2007Q3

REPORT INFORMATION
  Report Type: 
  Country: None (occurrence: None)
  Receive Date: 20070716
  Receipt Date: 20070307
  Transmission Date: 20080115
  Serious: No
  Sender: FDA-Public Use
  Company Number: US-BRISTOL-MYERS SQUIBB COMPANY-13706148

PATIENT
  Age: 74 Year
  Sex: Male

DRUGS (1)
  1. CARBIDOPA + LEVODOPA CR TABS 25/100MG [Suspect]

REACTIONS (1)
  - DRUG EFFECT DECREASED [None]
